FAERS Safety Report 12147794 (Version 1)
Quarter: 2016Q1

REPORT INFORMATION
  Report Type: Spontaneous
  Country: US (occurrence: US)
  Receive Date: 20160304
  Receipt Date: 20160304
  Transmission Date: 20160526
  Serious: No
  Sender: FDA-Public Use
  Company Number: US-009507513-1602USA011430

PATIENT
  Sex: Female

DRUGS (7)
  1. DEXAMETHASONE. [Suspect]
     Active Substance: DEXAMETHASONE
     Dosage: 5 MG/M2/DAY
  2. ALEMTUZUMAB [Concomitant]
     Active Substance: ALEMTUZUMAB
     Dosage: CONDITIONING REGIMEN: ALEMTUZUMAB (1 MG/KG) DAYS-21 TO-19 (WITH A TEST DOSE OF 0.2MG/KG ON DAY-22)
  3. HYDROXYUREA. [Concomitant]
     Active Substance: HYDROXYUREA
     Dosage: CONDITIONING REGIMEN (30 MG/KG/D) DAYS-22 TO -10
  4. CYCLOSPORINE. [Suspect]
     Active Substance: CYCLOSPORINE
  5. MELPHALAN [Concomitant]
     Active Substance: MELPHALAN
     Dosage: CONDITIONING REGIMEN (70MG/M2) DAYS-4 AND -3
  6. ETOPOSIDE. [Suspect]
     Active Substance: ETOPOSIDE
  7. FLUDARABINE PHOSPHATE. [Concomitant]
     Active Substance: FLUDARABINE PHOSPHATE
     Dosage: CONDITIONING REGIMEN (30 MG/M2) DAYS -9 THROUGH -5

REACTIONS (1)
  - Drug intolerance [Unknown]
